FAERS Safety Report 8204987-0 (Version None)
Quarter: 2012Q1

REPORT INFORMATION
  Report Type: 
  Country: None (occurrence: None)
  Receive Date: 20120313
  Receipt Date: 20120308
  Transmission Date: 20120608
  Serious: No
  Sender: FDA-Public Use
  Company Number: US-TEVA-327268USA

PATIENT
  Sex: Female
  Weight: 72.64 kg

DRUGS (10)
  1. ACETAMINOPHEN [Concomitant]
     Indication: PAIN
  2. PROAIR HFA [Suspect]
     Indication: ASTHMA
     Route: 055
     Dates: start: 20120208, end: 20120208
  3. VALSARTAN [Concomitant]
     Indication: HYPERTENSION
     Route: 048
  4. LABETALOL HCL [Concomitant]
     Indication: HYPERTENSION
  5. LEVOTHYROXINE SODIUM [Concomitant]
     Indication: HYPOTHYROIDISM
  6. ACETYLSALICYLIC ACID SRT [Concomitant]
  7. METFORMIN HYDROCHLORIDE [Concomitant]
     Indication: DIABETES MELLITUS
  8. INSULIN GLARGINE [Concomitant]
     Indication: DIABETES MELLITUS
  9. CARISOPRODOL [Concomitant]
  10. HYDROCHLOROTHIAZIDE [Concomitant]
     Indication: HYPERTENSION

REACTIONS (1)
  - TREMOR [None]
